FAERS Safety Report 5766510-X (Version None)
Quarter: 2008Q2

REPORT INFORMATION
  Report Type: 
  Country: None (occurrence: None)
  Receive Date: 20080612
  Receipt Date: 20080605
  Transmission Date: 20081010
  Serious: Yes (Other)
  Sender: FDA-Public Use
  Company Number: GB-RANBAXY-2008RR-15735

PATIENT

DRUGS (14)
  1. CLARITHROMYCIN [Suspect]
     Indication: BRONCHITIS
     Dosage: UNK
     Route: 048
     Dates: start: 20080218, end: 20080225
  2. ADCAL-D3 [Concomitant]
     Dosage: UNK
     Dates: start: 20021217
  3. AQUEOUS CREAM [Concomitant]
     Dosage: UNK
     Dates: start: 20001116
  4. ASPIRIN [Concomitant]
     Dosage: UNK
     Dates: start: 19950217
  5. CHLORAMPHENICOL [Concomitant]
     Dosage: UNK
     Dates: start: 20080502
  6. CINNARIZINE [Concomitant]
     Dosage: UNK
     Dates: start: 20021206
  7. DIPYRIDAMOLE [Concomitant]
     Dosage: UNK
     Dates: start: 20050405
  8. DOXYCYCLINE HYCLATE [Concomitant]
     Dosage: UNK
     Dates: start: 20080311
  9. EZETIMIBE [Concomitant]
     Dosage: UNK
     Dates: start: 20050520
  10. GLUCOSAMINE SULPHATE [Concomitant]
     Dosage: UNK
     Dates: start: 20080123
  11. NULYTELY [Concomitant]
     Dosage: UNK
     Dates: start: 20070124
  12. ACETAMINOPHEN [Concomitant]
     Dosage: UNK
     Dates: start: 20030710
  13. RAMIPRIL [Concomitant]
     Dosage: UNK
     Dates: start: 20020121
  14. SIMVASTATIN [Concomitant]
     Dosage: UNK
     Dates: start: 20050201

REACTIONS (1)
  - ANOSMIA [None]
